FAERS Safety Report 21896960 (Version 1)
Quarter: 2023Q1

REPORT INFORMATION
  Report Type: Spontaneous
  Country: CZ (occurrence: CZ)
  Receive Date: 20230123
  Receipt Date: 20230123
  Transmission Date: 20230417
  Serious: Yes (Death, Hospitalization)
  Sender: FDA-Public Use
  Company Number: CZ-ARISTO PHARMA-CLOZ202212061

PATIENT
  Age: 48 Year
  Sex: Male

DRUGS (12)
  1. CLOZAPINE [Suspect]
     Active Substance: CLOZAPINE
     Indication: Schizophrenia
     Dosage: 200 MILLIGRAM, QD (200 MG DAILY)
     Route: 048
  2. LEVOCETIRIZINE [Concomitant]
     Active Substance: LEVOCETIRIZINE
     Dosage: UNK
     Route: 065
  3. AMLODIPINE [Concomitant]
     Active Substance: AMLODIPINE BESYLATE
     Dosage: UNK
     Route: 065
  4. ARIPIPRAZOLE [Concomitant]
     Active Substance: ARIPIPRAZOLE
     Dosage: UNK
     Route: 065
  5. HALOPERIDOL [Concomitant]
     Active Substance: HALOPERIDOL
     Dosage: UNK
     Route: 065
  6. INDAPAMIDE [Concomitant]
     Active Substance: INDAPAMIDE
     Dosage: UNK
     Route: 065
  7. METOPROLOL [Concomitant]
     Active Substance: METOPROLOL
     Dosage: UNK
     Route: 065
  8. RISPERIDONE [Concomitant]
     Active Substance: RISPERIDONE
     Dosage: UNK
     Route: 065
  9. PERINDOPRIL [Concomitant]
     Active Substance: PERINDOPRIL
     Dosage: UNK
     Route: 065
  10. VALPROATE [Concomitant]
     Active Substance: VALPROIC ACID
     Dosage: UNK
     Route: 065
  11. TIAPRIDE [Concomitant]
     Active Substance: TIAPRIDE
     Dosage: UNK
     Route: 065
  12. CLONAZEPAM [Concomitant]
     Active Substance: CLONAZEPAM
     Dosage: UNK
     Route: 065

REACTIONS (18)
  - Myocarditis [Fatal]
  - Disorientation [Unknown]
  - C-reactive protein increased [Unknown]
  - Impulsive behaviour [Unknown]
  - Suicidal ideation [Unknown]
  - Delusional disorder, persecutory type [Unknown]
  - Morose [Unknown]
  - Diarrhoea [Unknown]
  - Fatigue [Unknown]
  - Somnolence [Unknown]
  - Tachycardia [Unknown]
  - Asthenia [Unknown]
  - Pyrexia [Unknown]
  - Salivary hypersecretion [Unknown]
  - Hyperhidrosis [Unknown]
  - Delirium [Unknown]
  - Fall [Unknown]
  - Hypotension [Unknown]
